FAERS Safety Report 11203851 (Version 1)
Quarter: 2015Q2

REPORT INFORMATION
  Report Type: Spontaneous
  Country: FR (occurrence: FR)
  Receive Date: 20150619
  Receipt Date: 20150619
  Transmission Date: 20150821
  Serious: Yes (Other)
  Sender: FDA-Public Use
  Company Number: FR-009507513-1506FRA010164

PATIENT
  Age: 38 Year
  Sex: Female

DRUGS (5)
  1. SERETIDE [Suspect]
     Active Substance: FLUTICASONE FUROATE\SALMETEROL XINAFOATE
     Indication: ASTHMA
     Dosage: 1 DF, QD
     Route: 055
  2. AIROMIR AUTOHALER [Suspect]
     Active Substance: ALBUTEROL SULFATE
     Indication: ASTHMA
     Dosage: 1 DF, BID
     Route: 055
  3. FOSAMAX [Suspect]
     Active Substance: ALENDRONATE SODIUM
     Indication: OSTEOPOROTIC FRACTURE
     Dosage: 1 DF, QW
     Route: 048
     Dates: start: 2014, end: 201505
  4. ZECLAR [Concomitant]
     Active Substance: CLARITHROMYCIN
     Indication: IMMUNOMODULATORY THERAPY
  5. INIPOMP [Concomitant]
     Active Substance: PANTOPRAZOLE SODIUM

REACTIONS (1)
  - Tooth injury [Recovered/Resolved]

NARRATIVE: CASE EVENT DATE: 201504
